FAERS Safety Report 8885724 (Version 1)
Quarter: 2012Q4

REPORT INFORMATION
  Report Type: 
  Country: FR (occurrence: FR)
  Receive Date: 20121102
  Receipt Date: 20121102
  Transmission Date: 20130627
  Serious: Yes (Hospitalization)
  Sender: FDA-Public Use
  Company Number: FR-PFIZER INC-2012270319

PATIENT
  Age: 54 Year
  Sex: Male

DRUGS (6)
  1. ZYVOXID [Suspect]
     Indication: SUBCUTANEOUS ABSCESS
     Dosage: 1200 mg, 1x/day
     Route: 048
     Dates: start: 20120717, end: 20120726
  2. RIFATER [Suspect]
     Indication: TUBERCULOUS PLEURISY
     Dosage: 5 DF, 1x/day
     Route: 048
     Dates: start: 20120530, end: 20120728
  3. MYAMBUTOL [Suspect]
     Indication: TUBERCULOUS PLEURISY
     Dosage: 3 DF, 1x/day
     Route: 048
     Dates: start: 20120530, end: 20120728
  4. VANCOMYCIN [Concomitant]
     Indication: SUBCUTANEOUS ABSCESS
     Dosage: UNK
     Dates: start: 20120712, end: 20120716
  5. GENTALLINE [Concomitant]
     Indication: SUBCUTANEOUS ABSCESS
     Dosage: UNK
     Dates: start: 20120712, end: 20120716
  6. RIFINAH [Concomitant]
     Dosage: UNK

REACTIONS (1)
  - Renal failure acute [Recovering/Resolving]
